FAERS Safety Report 8321348-4 (Version None)
Quarter: 2012Q2

REPORT INFORMATION
  Report Type: 
  Country: None (occurrence: None)
  Receive Date: 20120430
  Receipt Date: 20120425
  Transmission Date: 20120825
  Serious: Yes (Hospitalization)
  Sender: FDA-Public Use
  Company Number: JP-ACTELION-A-CH2011-57943

PATIENT
  Sex: Female
  Weight: 60 kg

DRUGS (7)
  1. TRACLEER [Suspect]
     Dosage: 62.5 MG, BID
     Route: 048
     Dates: start: 20110520, end: 20110626
  2. TRACLEER [Suspect]
     Dosage: 62.5 MG, BID
     Route: 048
     Dates: start: 20110920, end: 20110922
  3. WARFARIN POTASSIUM [Concomitant]
  4. FUROSEMIDE [Concomitant]
  5. TRACLEER [Suspect]
     Indication: PULMONARY ARTERIAL HYPERTENSION
     Dosage: 125 MG, BID
     Route: 048
     Dates: start: 20110627, end: 20110919
  6. BERAPROST SODIUM [Concomitant]
  7. ASPIRIN [Concomitant]

REACTIONS (4)
  - HEPATIC ENZYME INCREASED [None]
  - ASPARTATE AMINOTRANSFERASE INCREASED [None]
  - ALANINE AMINOTRANSFERASE INCREASED [None]
  - GAMMA-GLUTAMYLTRANSFERASE INCREASED [None]
